FAERS Safety Report 14780680 (Version 1)
Quarter: 2018Q2

REPORT INFORMATION
  Report Type: Spontaneous
  Country: CN (occurrence: CN)
  Receive Date: 20180419
  Receipt Date: 20180419
  Transmission Date: 20180711
  Serious: Yes (Other)
  Sender: FDA-Public Use
  Company Number: CN-PFIZER INC-2018157089

PATIENT
  Age: 12 Year

DRUGS (1)
  1. ZOLOFT [Suspect]
     Active Substance: SERTRALINE HYDROCHLORIDE
     Dosage: 47 DF, UNK
     Route: 048
     Dates: start: 20180411

REACTIONS (9)
  - Intentional overdose [Unknown]
  - Dizziness [Recovered/Resolved]
  - Somnolence [Recovering/Resolving]
  - Blood pressure increased [Not Recovered/Not Resolved]
  - Tremor [Recovered/Resolved]
  - Palpitations [Recovered/Resolved]
  - Dysphoria [Recovering/Resolving]
  - Tachycardia [Recovering/Resolving]
  - Hallucination [Recovering/Resolving]

NARRATIVE: CASE EVENT DATE: 201804
